FAERS Safety Report 6936321-8 (Version None)
Quarter: 2010Q3

REPORT INFORMATION
  Report Type: 
  Country: None (occurrence: None)
  Receive Date: 20100823
  Receipt Date: 20100811
  Transmission Date: 20110219
  Serious: Yes (Other)
  Sender: FDA-Public Use
  Company Number: US-PFIZER INC-2010101324

PATIENT
  Sex: Female
  Weight: 51.7 kg

DRUGS (3)
  1. DILANTIN [Suspect]
     Indication: CONVULSION
     Dosage: 200MG IN THE MORNING AND 100 MG IN THE EVENING
     Route: 048
  2. INDERAL [Concomitant]
     Indication: HYPERTENSION
     Dosage: 80 MG, DAILY
     Route: 048
  3. KEPPRA [Concomitant]
     Dosage: 500MG IN THE MORNING AND 750MG IN THE EVENING; 2X/DAY
     Route: 048

REACTIONS (5)
  - CONFUSIONAL STATE [None]
  - GAIT DISTURBANCE [None]
  - MALABSORPTION [None]
  - MALAISE [None]
  - SPEECH DISORDER [None]
